FAERS Safety Report 4733535-2 (Version None)
Quarter: 2005Q3

REPORT INFORMATION
  Report Type: 
  Country: None (occurrence: None)
  Receive Date: 20050729
  Receipt Date: 20050721
  Transmission Date: 20060218
  Serious: Yes (Death)
  Sender: FDA-Public Use
  Company Number: A-CH2005-10183

PATIENT
  Age: 35 Year
  Sex: Female

DRUGS (1)
  1. TRACLEER [Suspect]
     Dosage: ORAL
     Route: 048
     Dates: start: 20020704, end: 20050711

REACTIONS (1)
  - DEATH [None]
